FAERS Safety Report 10308687 (Version 1)
Quarter: 2014Q3

REPORT INFORMATION
  Report Type: Spontaneous
  Country: US (occurrence: None)
  Receive Date: 20140715
  Receipt Date: 20140715
  Transmission Date: 20150326
  Serious: No
  Sender: FDA-Public Use
  Company Number: None

PATIENT
  Age: 11 Year
  Sex: Female

DRUGS (2)
  1. SYPRINE [Suspect]
     Active Substance: TRIENTINE HYDROCHLORIDE
     Dosage: ONE CAPSULE
     Route: 048
  2. GALVIN - ZINC SUPPLEMENT [Concomitant]
     Route: 048

REACTIONS (4)
  - Abdominal discomfort [None]
  - Nausea [None]
  - Muscle spasms [None]
  - Asthenia [None]

NARRATIVE: CASE EVENT DATE: 20130201
